FAERS Safety Report 7889479-0 (Version None)
Quarter: 2011Q4

REPORT INFORMATION
  Report Type: 
  Country: None (occurrence: None)
  Receive Date: 20111103
  Receipt Date: 20111031
  Transmission Date: 20120403
  Serious: Yes (Death, Other)
  Sender: FDA-Public Use
  Company Number: PHHY2011US96260

PATIENT
  Age: 71 Year
  Sex: Male

DRUGS (3)
  1. AMIODARONE HCL [Suspect]
     Dosage: UNK
  2. COLCHICINE [Interacting]
     Dosage: UNK
  3. DILTIAZEM HCL [Interacting]
     Dosage: UNK

REACTIONS (3)
  - GASTROINTESTINAL DISORDER [None]
  - DRUG INTERACTION [None]
  - TOXICITY TO VARIOUS AGENTS [None]
